FAERS Safety Report 21567621 (Version 1)
Quarter: 2022Q4

REPORT INFORMATION
  Report Type: Spontaneous
  Country: US (occurrence: None)
  Receive Date: 20221108
  Receipt Date: 20221108
  Transmission Date: 20230113
  Serious: No
  Sender: FDA-Public Use
  Company Number: None

PATIENT
  Sex: Male

DRUGS (8)
  1. AMBRISENTAN [Suspect]
     Active Substance: AMBRISENTAN
     Indication: Pulmonary arterial hypertension
     Dosage: FREQUENCY : DAILY;?
     Route: 048
  2. TADALAFIL [Concomitant]
     Active Substance: TADALAFIL
  3. LISINOPRIL [Concomitant]
     Active Substance: LISINOPRIL
  4. SPIRONOLACTONE [Concomitant]
     Active Substance: SPIRONOLACTONE
  5. FUROSEMIDE [Concomitant]
     Active Substance: FUROSEMIDE
  6. LETAIRIS [Concomitant]
     Active Substance: AMBRISENTAN
  7. PRILOSEC OTC [Concomitant]
     Active Substance: OMEPRAZOLE MAGNESIUM
  8. ALBUTEROL SULFATE [Concomitant]
     Active Substance: ALBUTEROL SULFATE

REACTIONS (4)
  - Product availability issue [None]
  - Malaise [None]
  - Abdominal pain upper [None]
  - Nausea [None]
